FAERS Safety Report 6463096-1 (Version None)
Quarter: 2009Q4

REPORT INFORMATION
  Report Type: 
  Country: None (occurrence: None)
  Receive Date: 20091130
  Receipt Date: 20091117
  Transmission Date: 20100525
  Serious: Yes (Other)
  Sender: FDA-Public Use
  Company Number: TW-ELI_LILLY_AND_COMPANY-TW200911004809

PATIENT
  Age: 37 Year
  Sex: Female

DRUGS (5)
  1. CYMBALTA [Suspect]
     Indication: MAJOR DEPRESSION
     Dosage: 30 MG, DAILY (1/D)
  2. CYMBALTA [Suspect]
     Dosage: 60 MG, DAILY (1/D)
  3. CYMBALTA [Suspect]
     Dosage: 90 MG, DAILY (1/D)
  4. CYMBALTA [Suspect]
     Dosage: 60 MG, DAILY (1/D)
  5. ALPRAZOLAM [Concomitant]
     Dosage: 0.5 MG, AS NEEDED

REACTIONS (1)
  - BINGE EATING [None]
